FAERS Safety Report 24595644 (Version 3)
Quarter: 2025Q3

REPORT INFORMATION
  Report Type: Spontaneous
  Country: BR (occurrence: BR)
  Receive Date: 20241109
  Receipt Date: 20250810
  Transmission Date: 20251020
  Serious: Yes (Other)
  Sender: ALEXION PHARMACEUTICALS
  Company Number: BR-AstraZeneca-CH-00728290A

PATIENT
  Age: 63 Year
  Sex: Female

DRUGS (1)
  1. QTERN [Suspect]
     Active Substance: DAPAGLIFLOZIN\SAXAGLIPTIN HYDROCHLORIDE
     Indication: Diabetes mellitus
     Dosage: 1 DOSAGE FORM, QD

REACTIONS (2)
  - Genital candidiasis [Not Recovered/Not Resolved]
  - Intentional product misuse [Not Recovered/Not Resolved]
